FAERS Safety Report 11328302 (Version 1)
Quarter: 2015Q3

REPORT INFORMATION
  Report Type: Spontaneous
  Country: JP (occurrence: JP)
  Receive Date: 20150731
  Receipt Date: 20150731
  Transmission Date: 20151125
  Serious: Yes (Hospitalization, Disabling, Other)
  Sender: FDA-Public Use
  Company Number: JP-PFIZER INC-2015213183

PATIENT
  Age: 82 Year
  Sex: Female
  Weight: 45 kg

DRUGS (16)
  1. OLMETEC [Concomitant]
     Active Substance: OLMESARTAN MEDOXOMIL
     Dosage: 20 MG, 1X/DAY IN THE MORNING
     Route: 048
  2. XARELTO [Concomitant]
     Active Substance: RIVAROXABAN
     Dosage: 10 MG, 1X/DAY IN THE MORNING
     Route: 048
  3. MADOPAR [Concomitant]
     Active Substance: BENSERAZIDE HYDROCHLORIDE\LEVODOPA
     Dosage: 2 DF, 2X/DAY
     Route: 048
  4. INLYTA [Suspect]
     Active Substance: AXITINIB
     Dosage: 8 MG, 2X/DAY
     Route: 048
     Dates: start: 20140925, end: 20141022
  5. FERROMIA [Concomitant]
     Active Substance: FERROUS CITRATE
     Dosage: 1 DF, 1X/DAY IN THE MORNING
     Route: 048
  6. ACOFIDE [Concomitant]
     Dosage: 100 MG, 3X/DAY
     Route: 048
  7. WARFARIN [Concomitant]
     Active Substance: WARFARIN
     Indication: SINUS NODE DYSFUNCTION
     Route: 048
  8. INLYTA [Suspect]
     Active Substance: AXITINIB
     Indication: METASTASES TO LUNG
     Dosage: 7 MG, 2X/DAY
     Route: 048
     Dates: start: 20131114, end: 20140924
  9. INLYTA [Suspect]
     Active Substance: AXITINIB
     Dosage: 9 MG, 2X/DAY
     Route: 048
     Dates: start: 20141023, end: 20141119
  10. BI SIFROL [Concomitant]
     Active Substance: PRAMIPEXOLE
     Dosage: 0.5 MG, 2X/DAY
     Route: 048
  11. ARICEPT [Concomitant]
     Active Substance: DONEPEZIL HYDROCHLORIDE
     Dosage: 3 MG, 1X/DAY IN THE MORNING
     Route: 048
  12. GRANDAXIN [Concomitant]
     Active Substance: TOFISOPAM
     Dosage: 50 MG, 1X/DAY IN THE EVENING
     Route: 048
  13. INLYTA [Suspect]
     Active Substance: AXITINIB
     Indication: RENAL CELL CARCINOMA
     Dosage: 5 MG, 2X/DAY
     Route: 048
     Dates: start: 20131031, end: 20131113
  14. GRAMALIL [Concomitant]
     Active Substance: TIAPRIDE HYDROCHLORIDE
     Dosage: 25 MG, 3X/DAY
     Route: 048
  15. INLYTA [Suspect]
     Active Substance: AXITINIB
     Dosage: 10 MG, 2X/DAY
     Route: 048
     Dates: start: 20141120, end: 20150716
  16. TAKEPRON [Concomitant]
     Active Substance: LANSOPRAZOLE
     Dosage: 15 MG, 1X/DAY IN THE EVENING
     Route: 048

REACTIONS (2)
  - Cerebral infarction [Recovered/Resolved with Sequelae]
  - Hemiplegia [Unknown]

NARRATIVE: CASE EVENT DATE: 20150527
